FAERS Safety Report 7213482-7 (Version None)
Quarter: 2011Q1

REPORT INFORMATION
  Report Type: 
  Country: None (occurrence: None)
  Receive Date: 20110106
  Receipt Date: 20101223
  Transmission Date: 20110831
  Serious: Yes (Other)
  Sender: FDA-Public Use
  Company Number: PHHY2010GB87632

PATIENT
  Age: 43 Year
  Sex: Female

DRUGS (1)
  1. DOXYCYCLINE [Suspect]
     Indication: SINUSITIS
     Dosage: 100 MG, UNK
     Route: 048
     Dates: start: 20100812, end: 20100912

REACTIONS (2)
  - HEADACHE [None]
  - BENIGN INTRACRANIAL HYPERTENSION [None]
